FAERS Safety Report 4791704-X (Version None)
Quarter: 2005Q4

REPORT INFORMATION
  Report Type: 
  Country: None (occurrence: None)
  Receive Date: 20051007
  Receipt Date: 20050928
  Transmission Date: 20060501
  Serious: Yes (Congenital Anomaly)
  Sender: FDA-Public Use
  Company Number: JP-GLAXOSMITHKLINE-B0395538A

PATIENT
  Sex: Female
  Weight: 2.5 kg

DRUGS (6)
  1. ZIDOVUDINE [Suspect]
     Indication: ANTIVIRAL PROPHYLAXIS
     Dosage: .5ML FOUR TIMES PER DAY
     Route: 048
     Dates: start: 20011218, end: 20020129
  2. EPIVIR [Suspect]
     Indication: HIV INFECTION
     Dosage: 150MG TWICE PER DAY
     Dates: start: 19981106, end: 20011217
  3. RETROVIR [Suspect]
     Indication: HIV INFECTION
     Dosage: 400MG PER DAY
     Dates: start: 19981106, end: 20011217
  4. ZIDOVUDINE [Suspect]
     Dosage: 800MG PER DAY
     Dates: start: 20011218, end: 20011218
  5. VIRACEPT [Suspect]
     Indication: HIV INFECTION
     Dosage: 2500MG PER DAY
     Dates: start: 19981106, end: 20011217
  6. UTEMERIN [Concomitant]
     Dosage: 5MG PER DAY
     Dates: start: 20011024, end: 20011216

REACTIONS (9)
  - ANAEMIA [None]
  - ATRIAL SEPTAL DEFECT [None]
  - CARDIAC DISORDER [None]
  - CARDIAC MURMUR [None]
  - DRUG EXPOSURE DURING PREGNANCY [None]
  - SYNOSTOSIS [None]
  - TACHYCARDIA [None]
  - TRICUSPID VALVE INCOMPETENCE [None]
  - VOMITING NEONATAL [None]
